FAERS Safety Report 13926112 (Version 1)
Quarter: 2017Q3

REPORT INFORMATION
  Report Type: Spontaneous
  Country: US (occurrence: US)
  Receive Date: 20170831
  Receipt Date: 20170831
  Transmission Date: 20171127
  Serious: No
  Sender: FDA-Public Use
  Company Number: US-ACTELION-A-NJ2017-158879

PATIENT
  Age: 50 Year
  Sex: Female
  Weight: 65.76 kg

DRUGS (2)
  1. WARFARIN [Concomitant]
     Active Substance: WARFARIN
  2. VENTAVIS [Suspect]
     Active Substance: ILOPROST
     Indication: PULMONARY ARTERIAL HYPERTENSION
     Dosage: 5 MCG, 6-9X/DAY
     Route: 055

REACTIONS (2)
  - Dyspnoea [Unknown]
  - Drug dose omission [Unknown]
